FAERS Safety Report 21006982 (Version 2)
Quarter: 2022Q3

REPORT INFORMATION
  Report Type: Spontaneous
  Country: US (occurrence: US)
  Receive Date: 20220625
  Receipt Date: 20220724
  Transmission Date: 20221027
  Serious: No
  Sender: FDA-Public Use
  Company Number: US-CELGENE-USA-20220202777

PATIENT
  Age: 82 Year
  Sex: Male
  Weight: 96.16 kg

DRUGS (3)
  1. POMALYST [Suspect]
     Active Substance: POMALIDOMIDE
     Indication: Plasma cell myeloma
     Route: 048
     Dates: start: 20211222
  2. POMALYST [Suspect]
     Active Substance: POMALIDOMIDE
     Route: 048
     Dates: start: 20211222
  3. POMALYST [Suspect]
     Active Substance: POMALIDOMIDE
     Dosage: FREQ: EVERY OTHER DAY
     Route: 048
     Dates: start: 20211222

REACTIONS (6)
  - Haematocrit decreased [Not Recovered/Not Resolved]
  - White blood cell count decreased [Unknown]
  - Dry skin [Unknown]
  - Red blood cell count decreased [Unknown]
  - Off label use [Unknown]
  - Haemoglobin decreased [Not Recovered/Not Resolved]

NARRATIVE: CASE EVENT DATE: 20220204
